FAERS Safety Report 7816731-7 (Version None)
Quarter: 2011Q4

REPORT INFORMATION
  Report Type: 
  Country: None (occurrence: None)
  Receive Date: 20111013
  Receipt Date: 20110930
  Transmission Date: 20120403
  Serious: Yes (Hospitalization)
  Sender: FDA-Public Use
  Company Number: US-006451

PATIENT
  Sex: Male
  Weight: 39.5 kg

DRUGS (1)
  1. SOMATROPIN RDNA [Suspect]
     Indication: PRADER-WILLI SYNDROME
     Dosage: (0.07 MG/KG, 1.35 MG DAILY / 0.27 ML SUBCUTANEOUS)
     Route: 058
     Dates: start: 20110620

REACTIONS (3)
  - PNEUMONIA [None]
  - OXYGEN SATURATION DECREASED [None]
  - ASTHMA [None]
